FAERS Safety Report 8049115-X (Version None)
Quarter: 2012Q1

REPORT INFORMATION
  Report Type: 
  Country: None (occurrence: None)
  Receive Date: 20120117
  Receipt Date: 20120113
  Transmission Date: 20120608
  Serious: Yes (Hospitalization)
  Sender: FDA-Public Use
  Company Number: DE-SANOFI-AVENTIS-2011SA070721

PATIENT
  Age: 66 Year
  Sex: Male
  Weight: 71 kg

DRUGS (10)
  1. MULTAQ [Suspect]
     Route: 048
     Dates: start: 20100505, end: 20111020
  2. BISOPROLOL FUMARATE [Concomitant]
     Indication: TACHYCARDIA
     Route: 048
     Dates: start: 20100101
  3. ACETYLSALICYLIC ACID SRT [Concomitant]
     Indication: THROMBOCYTOSIS
     Route: 048
     Dates: start: 20100101
  4. PANTOPRAZOLE [Concomitant]
     Indication: GASTRIC DISORDER
     Route: 048
     Dates: start: 20100101, end: 20100101
  5. PANTOPRAZOLE [Concomitant]
     Route: 048
     Dates: start: 20100101
  6. ACETYLSALICYLIC ACID SRT [Concomitant]
     Route: 048
     Dates: start: 20100101
  7. BISOPROLOL FUMARATE [Concomitant]
     Route: 048
     Dates: start: 20100101
  8. MULTAQ [Suspect]
     Route: 048
     Dates: start: 20100505, end: 20111020
  9. VENLAFAXINE [Concomitant]
     Indication: ANXIETY DISORDER
     Route: 048
     Dates: start: 20110901
  10. BISOPROLOL FUMARATE [Concomitant]
     Indication: ATRIAL FIBRILLATION
     Route: 048
     Dates: start: 20100101

REACTIONS (4)
  - PLEURAL EFFUSION [None]
  - DYSPNOEA [None]
  - PULMONARY HYPERTENSION [None]
  - PERICARDIAL EFFUSION [None]
